FAERS Safety Report 16210168 (Version 1)
Quarter: 2019Q2

REPORT INFORMATION
  Report Type: Spontaneous
  Country: FR (occurrence: FR)
  Receive Date: 20190417
  Receipt Date: 20190417
  Transmission Date: 20190711
  Serious: Yes (Hospitalization)
  Sender: FDA-Public Use
  Company Number: FR-SUN PHARMACEUTICAL INDUSTRIES LTD-2018RR-188196

PATIENT
  Age: 77 Year
  Sex: Female
  Weight: 56 kg

DRUGS (3)
  1. FORTZAAR [Interacting]
     Active Substance: HYDROCHLOROTHIAZIDE\LOSARTAN POTASSIUM
     Indication: HYPERTENSION
     Dosage: NP ()
     Route: 048
     Dates: end: 20180809
  2. TERCIAN [Interacting]
     Active Substance: CYAMEMAZINE
     Indication: INSOMNIA
     Dosage: NP ()
     Route: 048
     Dates: end: 20180809
  3. FLECAINIDE [Suspect]
     Active Substance: FLECAINIDE
     Indication: ARRHYTHMIA
     Dosage: 200 MILLIGRAM
     Route: 048
     Dates: start: 2001, end: 20180809

REACTIONS (3)
  - Drug interaction [Unknown]
  - Arrhythmia [Recovered/Resolved]
  - Electrocardiogram QT prolonged [Recovered/Resolved]

NARRATIVE: CASE EVENT DATE: 20180809
